FAERS Safety Report 4436560-4 (Version None)
Quarter: 2004Q3

REPORT INFORMATION
  Report Type: 
  Country: None (occurrence: None)
  Receive Date: 20040830
  Receipt Date: 20040622
  Transmission Date: 20050211
  Serious: No
  Sender: FDA-Public Use
  Company Number: US-BRISTOL-MYERS SQUIBB COMPANY-12624193

PATIENT
  Age: 20 Year
  Sex: Male

DRUGS (1)
  1. ABILIFY [Suspect]
     Indication: AUTISM
     Dosage: APPROXIMATELY ^15 OR 20 MG ONCE A DAY^

REACTIONS (2)
  - ABNORMAL BEHAVIOUR [None]
  - GRIMACING [None]
